FAERS Safety Report 8464858-1 (Version None)
Quarter: 2012Q2

REPORT INFORMATION
  Report Type: 
  Country: None (occurrence: None)
  Receive Date: 20120626
  Receipt Date: 20120613
  Transmission Date: 20120825
  Serious: Yes (Hospitalization, Other)
  Sender: FDA-Public Use
  Company Number: US-ELI_LILLY_AND_COMPANY-US201006001826

PATIENT
  Sex: Female

DRUGS (7)
  1. HUMULIN N [Suspect]
     Dosage: 5 U, EACH EVENING
  2. HUMULIN N [Suspect]
     Dosage: 5 U, OTHER
  3. HUMULIN N [Suspect]
     Indication: TYPE 1 DIABETES MELLITUS
     Dosage: 14 U, EACH MORNING
  4. HUMULIN N [Suspect]
     Dosage: 14 U, EACH MORNING
  5. HUMULIN N [Suspect]
     Dosage: 5 U, PRN
  6. HUMALOG [Suspect]
  7. HUMULIN N [Suspect]
     Dosage: 10 U, EACH MORNING

REACTIONS (11)
  - BLINDNESS UNILATERAL [None]
  - BLOOD GLUCOSE DECREASED [None]
  - DIZZINESS [None]
  - VISUAL ACUITY REDUCED [None]
  - GLAUCOMA [None]
  - CATARACT OPERATION COMPLICATION [None]
  - CATARACT [None]
  - BLOOD GLUCOSE INCREASED [None]
  - DRUG INEFFECTIVE [None]
  - FEELING ABNORMAL [None]
  - NAUSEA [None]
